FAERS Safety Report 25494146 (Version 3)
Quarter: 2025Q3

REPORT INFORMATION
  Report Type: Report from Study
  Country: US (occurrence: US)
  Receive Date: 20250630
  Receipt Date: 20250930
  Transmission Date: 20251021
  Serious: Yes (Hospitalization, Other)
  Sender: SUNOVION
  Company Number: US-SUMITOMO PHARMA SWITZERLAND GMBH-2025SPA007055

PATIENT
  Age: 82 Year
  Sex: Male

DRUGS (4)
  1. ORGOVYX [Suspect]
     Active Substance: RELUGOLIX
     Indication: Prostate cancer
     Route: 048
  2. ORGOVYX [Suspect]
     Active Substance: RELUGOLIX
     Route: 048
  3. DIGOXIN [Suspect]
     Active Substance: DIGOXIN
  4. XTANDI [Suspect]
     Active Substance: ENZALUTAMIDE

REACTIONS (6)
  - Cardiac device implantation [Unknown]
  - Haemorrhage [Unknown]
  - Drug interaction [Unknown]
  - Fluid retention [Unknown]
  - Haemoglobin decreased [Unknown]
  - Fatigue [Recovering/Resolving]
